FAERS Safety Report 10220544 (Version 1)
Quarter: 2014Q2

REPORT INFORMATION
  Report Type: Spontaneous
  Country: GB (occurrence: None)
  Receive Date: 20140604
  Receipt Date: 20140604
  Transmission Date: 20141212
  Serious: Yes (Life-Threatening, Hospitalization)
  Sender: FDA-Public Use
  Company Number: FK201402098

PATIENT
  Sex: Female

DRUGS (2)
  1. METHOTREXATE (MANUFACTURER UNKNOWN) (METHOTREXATE) (METHOTREXATE) [Suspect]
     Indication: RHEUMATOID ARTHRITIS
     Route: 048
     Dates: start: 20090110, end: 20140423
  2. ENBREL (ETANERCEPT) (ETANERCEPT) [Suspect]
     Indication: RHEUMATOID ARTHRITIS
     Route: 058
     Dates: start: 20130409, end: 20140423

REACTIONS (4)
  - Pneumocystis jirovecii pneumonia [None]
  - Lower respiratory tract inflammation [None]
  - Hypoxia [None]
  - Pyrexia [None]
